FAERS Safety Report 5288704-2 (Version None)
Quarter: 2007Q2

REPORT INFORMATION
  Report Type: 
  Country: None (occurrence: None)
  Receive Date: 20070405
  Receipt Date: 20070329
  Transmission Date: 20071010
  Serious: Yes (Other)
  Sender: FDA-Public Use
  Company Number: 2005UW00496

PATIENT
  Age: 60 Year
  Sex: Female

DRUGS (7)
  1. ARIMIDEX [Suspect]
     Indication: BREAST CANCER
     Route: 048
     Dates: start: 20030501
  2. NORVASC [Concomitant]
     Indication: HYPERTENSION
  3. AVAPRO [Concomitant]
     Indication: HYPERTENSION
  4. FOSAMAX [Concomitant]
     Dates: start: 20040101
  5. CALCIUM [Concomitant]
  6. VITAMIN D [Concomitant]
  7. LIPITOR [Concomitant]

REACTIONS (4)
  - ARTHRALGIA [None]
  - ARTHRITIS [None]
  - DIABETES MELLITUS [None]
  - MYALGIA [None]
